FAERS Safety Report 4677266-6 (Version None)
Quarter: 2005Q2

REPORT INFORMATION
  Report Type: 
  Country: None (occurrence: None)
  Receive Date: 20050526
  Receipt Date: 20050523
  Transmission Date: 20051028
  Serious: Yes (Hospitalization)
  Sender: FDA-Public Use
  Company Number: 200511635GDS

PATIENT
  Age: 38 Year
  Sex: Male

DRUGS (3)
  1. ADIRO 300 (ACETYLSALICYLIC ACID) [Suspect]
     Indication: ACUTE MYOCARDIAL INFARCTION
     Dosage: 300 MG, BID, ORAL
     Route: 048
     Dates: start: 20040101
  2. ZARATOR [Concomitant]
  3. TENORMIN [Concomitant]

REACTIONS (2)
  - GAMMA-GLUTAMYLTRANSFERASE INCREASED [None]
  - PANCREATITIS [None]
